FAERS Safety Report 8094621-5 (Version None)
Quarter: 2012Q1

REPORT INFORMATION
  Report Type: 
  Country: None (occurrence: None)
  Receive Date: 20120126
  Receipt Date: 20120119
  Transmission Date: 20120608
  Serious: Yes (Hospitalization)
  Sender: FDA-Public Use
  Company Number: AUR-APL-2012-00603

PATIENT
  Age: 74 Year
  Sex: Male

DRUGS (6)
  1. ESCITALOPRAM [Concomitant]
  2. REPAGLINIDE [Suspect]
     Indication: DIABETES MELLITUS
     Dosage: (3 MG, 1 D), ORAL
     Route: 048
     Dates: start: 20110208, end: 20110208
  3. AMLODIPINE [Concomitant]
  4. VITAMIN B (THIAMINE HYDROCHLORIDE) [Concomitant]
  5. SIMVASTATIN [Suspect]
     Indication: DYSLIPIDAEMIA
     Dosage: (20 MG, 1 D), ORAL
     Route: 048
     Dates: start: 20110208, end: 20110808
  6. GLIMEPIRIDE [Suspect]
     Indication: PRODUCT USED FOR UNKNOWN INDICATION
     Dosage: (3 MG, 1 D), ORAL
     Route: 048
     Dates: start: 20090101, end: 20110808

REACTIONS (6)
  - HYPOGLYCAEMIA [None]
  - PSYCHOMOTOR HYPERACTIVITY [None]
  - CONFUSIONAL STATE [None]
  - NEUROTOXICITY [None]
  - RHABDOMYOLYSIS [None]
  - DEPRESSED LEVEL OF CONSCIOUSNESS [None]
